FAERS Safety Report 14693456 (Version 4)
Quarter: 2018Q2

REPORT INFORMATION
  Report Type: Report from Study
  Country: GR (occurrence: GR)
  Receive Date: 20180329
  Receipt Date: 20180620
  Transmission Date: 20180711
  Serious: Yes (Hospitalization)
  Sender: FDA-Public Use
  Company Number: GR-BAYER-2018-055601

PATIENT
  Age: 58 Year
  Sex: Male

DRUGS (2)
  1. BETAFERON [Suspect]
     Active Substance: INTERFERON BETA-1B
     Indication: MULTIPLE SCLEROSIS
     Dosage: 1 ML, QOD
     Route: 042
     Dates: start: 20150313
  2. BETACONNECT [Suspect]
     Active Substance: DEVICE
     Indication: MULTIPLE SCLEROSIS
     Dosage: 1 ML, QOD
     Route: 058
     Dates: start: 20150313

REACTIONS (5)
  - Anxiety [Recovered/Resolved]
  - Multiple sclerosis [Not Recovered/Not Resolved]
  - Stress [Recovered/Resolved]
  - Mental disorder [None]
  - Expired device used [None]

NARRATIVE: CASE EVENT DATE: 20180317
